FAERS Safety Report 13481269 (Version 3)
Quarter: 2018Q1

REPORT INFORMATION
  Report Type: Report from Study
  Country: US (occurrence: US)
  Receive Date: 20170424
  Receipt Date: 20180117
  Transmission Date: 20180508
  Serious: No
  Sender: FDA-Public Use
  Company Number: US-AMGEN-USASL2017046215

PATIENT
  Sex: Female

DRUGS (1)
  1. REPATHA [Suspect]
     Active Substance: EVOLOCUMAB
     Indication: HYPERLIPIDAEMIA
     Dosage: 140 MG, Q2WK
     Route: 065

REACTIONS (7)
  - Dyspnoea [Unknown]
  - Peripheral swelling [Unknown]
  - Muscular weakness [Unknown]
  - Productive cough [Unknown]
  - Pollakiuria [Unknown]
  - Back pain [Unknown]
  - Gait disturbance [Unknown]
